FAERS Safety Report 10213089 (Version 1)
Quarter: 2014Q2

REPORT INFORMATION
  Report Type: Report from Study
  Country: CA (occurrence: CA)
  Receive Date: 20140603
  Receipt Date: 20140603
  Transmission Date: 20141212
  Serious: Yes (Other)
  Sender: FDA-Public Use
  Company Number: CA-ROCHE-1412144

PATIENT
  Age: 66 Year
  Sex: Female

DRUGS (9)
  1. RITUXAN [Suspect]
     Indication: RHEUMATOID ARTHRITIS
     Dosage: FREQUENCY:  DAY 1, 15 DATE OF LAST DOSE: 29/JAN/2014
     Route: 042
     Dates: start: 20140114
  2. METHYLPREDNISOLONE [Concomitant]
     Indication: PREMEDICATION
     Route: 042
     Dates: start: 20140114
  3. ACETAMINOPHEN [Concomitant]
     Indication: PREMEDICATION
     Route: 048
     Dates: start: 20140114
  4. METHOTREXATE [Concomitant]
  5. PREDNISONE [Concomitant]
  6. PROZAC [Concomitant]
  7. SYNTHROID [Concomitant]
  8. VITAMIN E [Concomitant]
  9. FOLIC ACID [Concomitant]

REACTIONS (1)
  - Cerebrovascular accident [Unknown]
